FAERS Safety Report 13549130 (Version 4)
Quarter: 2017Q3

REPORT INFORMATION
  Report Type: Spontaneous
  Country: SE (occurrence: SE)
  Receive Date: 20170516
  Receipt Date: 20170928
  Transmission Date: 20171127
  Serious: Yes (Hospitalization, Other)
  Sender: FDA-Public Use
  Company Number: SE-IPSEN BIOPHARMACEUTICALS, INC.-2017-03872

PATIENT
  Age: 68 Year
  Sex: Male

DRUGS (29)
  1. OPIUM TINCTURE [Concomitant]
     Active Substance: MORPHINE
     Indication: DIARRHOEA
     Route: 048
     Dates: start: 20160824
  2. PALONOSTERON [Concomitant]
     Indication: PREMEDICATION
     Dosage: IN CONJUNCTION WITH EVERY LUTETIUM TREATMENT
     Route: 042
     Dates: start: 20160321
  3. OCTREOTIDE. [Concomitant]
     Active Substance: OCTREOTIDE
     Indication: DRUG THERAPY
     Route: 042
     Dates: start: 20160519
  4. SOMATULINE PR [Suspect]
     Active Substance: LANREOTIDE ACETATE
     Indication: NEUROENDOCRINE TUMOUR
     Dosage: 120 MG
     Route: 058
     Dates: start: 20120924
  5. BISOPROLOL [Concomitant]
     Active Substance: BISOPROLOL
     Indication: HYPERTENSION
     Dates: start: 20150602
  6. VAMINE 14G/N/L [Concomitant]
     Indication: SUPPLEMENTATION THERAPY
     Dosage: IN CONJUNCTION WITH EVERY LUTETIUM TREATMENT
     Route: 042
     Dates: start: 20160321
  7. ALLOPURINOL. [Concomitant]
     Active Substance: ALLOPURINOL
     Indication: DRUG THERAPY
     Dosage: MEDICATION IN CONJUNCTION WITH LUTETIUM TREATMENT
     Route: 048
     Dates: start: 20160519
  8. PANCREON [Concomitant]
     Active Substance: PANCRELIPASE
     Indication: NEUROENDOCRINE TUMOUR
     Route: 048
     Dates: start: 20090911
  9. FUROSEMIDE. [Concomitant]
     Active Substance: FUROSEMIDE
     Indication: CARDIAC FAILURE
     Route: 048
     Dates: start: 20160825
  10. FOLIC ACID. [Concomitant]
     Active Substance: FOLIC ACID
     Indication: ANAEMIA FOLATE DEFICIENCY
     Route: 048
     Dates: start: 20101220
  11. OMEPRAZOLE. [Concomitant]
     Active Substance: OMEPRAZOLE
     Indication: ABDOMINAL PAIN UPPER
     Route: 048
     Dates: start: 20160610
  12. ZOLPIDEM [Concomitant]
     Active Substance: ZOLPIDEM\ZOLPIDEM TARTRATE
     Indication: INSOMNIA
     Route: 048
     Dates: start: 20150626
  13. APIXABAN [Concomitant]
     Active Substance: APIXABAN
     Indication: ATRIAL FIBRILLATION
     Route: 048
     Dates: start: 20150127
  14. LIPITOR [Concomitant]
     Active Substance: ATORVASTATIN CALCIUM
     Indication: HYPERLIPIDAEMIA
     Route: 048
     Dates: start: 20110316
  15. HYDROXOCOBALAMIN [Concomitant]
     Active Substance: HYDROXOCOBALAMIN
     Indication: VITAMIN B12 DEFICIENCY
     Route: 030
     Dates: start: 20100825
  16. CALCHICHEW D3 [Concomitant]
     Indication: HYPOVITAMINOSIS
     Dosage: 500/400 UNITS
     Route: 048
     Dates: start: 20130924
  17. BETAMETHASONE. [Concomitant]
     Active Substance: BETAMETHASONE
     Indication: SUPPLEMENTATION THERAPY
     Route: 048
     Dates: start: 20160826
  18. FINASTERIDE. [Concomitant]
     Active Substance: FINASTERIDE
     Indication: BENIGN PROSTATIC HYPERPLASIA
     Route: 048
     Dates: start: 20140826
  19. RHINOCORT [Concomitant]
     Active Substance: BUDESONIDE
     Indication: RHINORRHOEA
     Route: 045
     Dates: start: 20150421
  20. ATORVASTATIN [Concomitant]
     Active Substance: ATORVASTATIN
     Indication: HYPERCHOLESTEROLAEMIA
     Route: 048
     Dates: start: 20080123
  21. BETAPRED [Concomitant]
     Active Substance: BETAMETHASONE SODIUM PHOSPHATE
     Indication: PREMEDICATION
     Dosage: IN CONJUNCTION WITH EVERY LUTETIUM TREATMENT
     Route: 042
     Dates: start: 20160321
  22. LX1606 [Concomitant]
     Indication: CARCINOID SYNDROME
     Route: 048
     Dates: start: 20141104
  23. CODEINE/PARACETAMOL [Concomitant]
     Active Substance: ACETAMINOPHEN\CODEINE PHOSPHATE
     Indication: ABDOMINAL PAIN
     Dosage: 500/30 MG
     Route: 048
     Dates: start: 20160406
  24. MORPHINE [Concomitant]
     Active Substance: MORPHINE
     Indication: ABDOMINAL PAIN
     Route: 048
     Dates: start: 20160324
  25. ONDASETRON [Concomitant]
     Active Substance: ONDANSETRON
     Indication: NAUSEA
     Route: 048
     Dates: start: 20160620
  26. LOPERAMIDE [Concomitant]
     Active Substance: LOPERAMIDE
     Indication: DIARRHOEA
     Route: 048
     Dates: start: 2010
  27. NITROGLYCERIN. [Concomitant]
     Active Substance: NITROGLYCERIN
     Indication: ANGINA PECTORIS
     Route: 048
     Dates: start: 19930603
  28. EPLERENON [Concomitant]
     Active Substance: EPLERENONE
     Indication: CARDIAC FAILURE
     Route: 048
     Dates: start: 20150810
  29. APREPITANT. [Concomitant]
     Active Substance: APREPITANT
     Indication: THERAPEUTIC PROCEDURE
     Dosage: UNDER REDUCTION SCHEDULE
     Route: 048
     Dates: start: 20160825

REACTIONS (12)
  - Insomnia [Not Recovered/Not Resolved]
  - Abdominal pain upper [Not Recovered/Not Resolved]
  - Calcium deficiency [Not Recovered/Not Resolved]
  - Pneumonia [Recovered/Resolved]
  - Infection [Recovered/Resolved]
  - Inappropriate schedule of drug administration [Unknown]
  - Vertigo [Not Recovered/Not Resolved]
  - Anaemia [Not Recovered/Not Resolved]
  - Benign prostatic hyperplasia [Not Recovered/Not Resolved]
  - Sepsis [Recovered/Resolved]
  - Vitamin D deficiency [Not Recovered/Not Resolved]
  - Nitrite urine present [Recovered/Resolved]

NARRATIVE: CASE EVENT DATE: 2013
